FAERS Safety Report 10154386 (Version 1)
Quarter: 2014Q2

REPORT INFORMATION
  Report Type: Spontaneous
  Country: AT (occurrence: None)
  Receive Date: 20140502
  Receipt Date: 20140502
  Transmission Date: 20141212
  Serious: Yes (Life-Threatening, Hospitalization)
  Sender: FDA-Public Use
  Company Number: 2014P1003491

PATIENT
  Age: 02 Year
  Sex: Male

DRUGS (1)
  1. LIDOCAINE [Suspect]
     Route: 048

REACTIONS (11)
  - Gait disturbance [None]
  - Generalised tonic-clonic seizure [None]
  - Status epilepticus [None]
  - Respiratory failure [None]
  - Cardiac arrest [None]
  - Disorientation [None]
  - Apathy [None]
  - Posterior reversible encephalopathy syndrome [None]
  - Neurotoxicity [None]
  - Exposure via ingestion [None]
  - Overdose [None]
